FAERS Safety Report 22340003 (Version 1)
Quarter: 2023Q2

REPORT INFORMATION
  Report Type: Spontaneous
  Country: TW (occurrence: TW)
  Receive Date: 20230518
  Receipt Date: 20230518
  Transmission Date: 20230721
  Serious: Yes (Hospitalization)
  Sender: FDA-Public Use
  Company Number: TW-MYLANLABS-2023M1051279

PATIENT
  Age: 58 Year
  Sex: Female

DRUGS (20)
  1. ACEMETACIN [Suspect]
     Active Substance: ACEMETACIN
     Indication: Pain management
     Dosage: 90 MILLIGRAM, BID
     Route: 048
     Dates: start: 20171220, end: 20171224
  2. FLUOROURACIL [Suspect]
     Active Substance: FLUOROURACIL
     Indication: Adenocarcinoma gastric
     Dosage: UNK, AS A PART OF FOLFORI REGIMEN
     Route: 065
     Dates: start: 2016, end: 201709
  3. FLUOROURACIL [Suspect]
     Active Substance: FLUOROURACIL
     Indication: Metastases to ovary
  4. FLUOROURACIL [Suspect]
     Active Substance: FLUOROURACIL
     Indication: Metastases to peritoneum
  5. OXALIPLATIN [Suspect]
     Active Substance: OXALIPLATIN
     Indication: Adenocarcinoma gastric
     Dosage: UNK, AS A PART OF XELOX REGIMEN
     Route: 065
     Dates: start: 2016, end: 201709
  6. OXALIPLATIN [Suspect]
     Active Substance: OXALIPLATIN
     Indication: Metastases to ovary
  7. OXALIPLATIN [Suspect]
     Active Substance: OXALIPLATIN
     Indication: Metastases to peritoneum
  8. TAMOXIFEN [Suspect]
     Active Substance: TAMOXIFEN
     Indication: Hormone therapy
     Dosage: UNK
     Route: 065
     Dates: start: 2016
  9. CAPECITABINE [Suspect]
     Active Substance: CAPECITABINE
     Indication: Adenocarcinoma gastric
     Dosage: UNK, AS A PART OF XELOX REGIMEN
     Route: 065
     Dates: start: 2016, end: 201709
  10. CAPECITABINE [Suspect]
     Active Substance: CAPECITABINE
     Indication: Metastases to ovary
  11. CAPECITABINE [Suspect]
     Active Substance: CAPECITABINE
     Indication: Metastases to peritoneum
  12. LEUCOVORIN CALCIUM [Suspect]
     Active Substance: LEUCOVORIN CALCIUM
     Indication: Adenocarcinoma gastric
     Dosage: UNK, AS A PART OF FOLFORI REGIMEN
     Route: 065
     Dates: start: 2016, end: 201709
  13. LEUCOVORIN CALCIUM [Suspect]
     Active Substance: LEUCOVORIN CALCIUM
     Indication: Metastases to ovary
  14. LEUCOVORIN CALCIUM [Suspect]
     Active Substance: LEUCOVORIN CALCIUM
     Indication: Metastases to peritoneum
  15. IRINOTECAN HYDROCHLORIDE [Suspect]
     Active Substance: IRINOTECAN HYDROCHLORIDE
     Indication: Adenocarcinoma gastric
     Dosage: UNK, AS A PART OF FOLFORI REGIMEN
     Route: 065
     Dates: start: 2016, end: 201709
  16. IRINOTECAN HYDROCHLORIDE [Suspect]
     Active Substance: IRINOTECAN HYDROCHLORIDE
     Indication: Metastases to ovary
  17. IRINOTECAN HYDROCHLORIDE [Suspect]
     Active Substance: IRINOTECAN HYDROCHLORIDE
     Indication: Metastases to peritoneum
  18. NIVOLUMAB [Suspect]
     Active Substance: NIVOLUMAB
     Indication: Adenocarcinoma gastric
     Dosage: 3 MILLIGRAM/KILOGRAM, CYCLE
     Route: 065
     Dates: start: 20171124
  19. NIVOLUMAB [Suspect]
     Active Substance: NIVOLUMAB
     Indication: Metastases to ovary
     Dosage: 3 MILLIGRAM/KILOGRAM, CYCLE, SECOND CYCLE
     Route: 065
     Dates: start: 20171211
  20. NIVOLUMAB [Suspect]
     Active Substance: NIVOLUMAB
     Indication: Metastases to peritoneum
     Dosage: 3 MILLIGRAM/KILOGRAM, CYCLE, THIRD CYCLE
     Route: 065
     Dates: start: 20180104

REACTIONS (3)
  - Disease progression [Unknown]
  - Drug ineffective [Unknown]
  - Renal tubular injury [Recovered/Resolved]

NARRATIVE: CASE EVENT DATE: 20170101
